FAERS Safety Report 18512675 (Version 1)
Quarter: 2020Q4

REPORT INFORMATION
  Report Type: Spontaneous
  Country: DE (occurrence: DE)
  Receive Date: 20201117
  Receipt Date: 20201117
  Transmission Date: 20210114
  Serious: Yes (Death, Life-Threatening, Hospitalization, Other)
  Sender: FDA-Public Use
  Company Number: DE-ALLERGAN-2043683US

PATIENT
  Sex: Female
  Weight: 71 kg

DRUGS (51)
  1. VALSARTAN. [Suspect]
     Active Substance: VALSARTAN
     Dosage: 160 MG, BID, (ONCE IN THE MORNING, ONCE IN THE EVENING)
     Dates: start: 201005
  2. VALSARTAN. [Suspect]
     Active Substance: VALSARTAN
     Dosage: 320 MG, QD
     Dates: start: 2005
  3. BISOPROLOL W/HYDROCHLOROTHIAZIDE [Suspect]
     Active Substance: BISOPROLOL FUMARATE\HYDROCHLOROTHIAZIDE
     Indication: PRODUCT USED FOR UNKNOWN INDICATION
     Dosage: HALF AN UNIT OF 10/25, QD, ONCE IN THE MORNING
     Dates: start: 200903
  4. VALSARTAN HEXAL [Suspect]
     Active Substance: VALSARTAN
     Dosage: UNK
     Dates: start: 2013
  5. DIOVAN [Suspect]
     Active Substance: VALSARTAN
     Dosage: HALF X 160 MG, QD, 1X DAILY (EVENING)
     Dates: start: 201302
  6. DIOVAN [Suspect]
     Active Substance: VALSARTAN
     Dosage: 160 MG
     Dates: start: 2013, end: 2013
  7. VALSARTAN DURA [Concomitant]
     Active Substance: VALSARTAN
     Dosage: 160 MG
     Dates: start: 201702
  8. HYDROMORPHONE [Concomitant]
     Active Substance: HYDROMORPHONE
     Dosage: UNK
     Dates: start: 201902
  9. VALSARTAN 1A PHARMA [Suspect]
     Active Substance: VALSARTAN
     Dosage: 160 MG, 2 X DAILY
     Dates: start: 200502
  10. MOMETASONE [Concomitant]
     Active Substance: MOMETASONE
     Dosage: 1 MG/G
  11. PANTOPRAZOLE [Concomitant]
     Active Substance: PANTOPRAZOLE
     Dosage: 40 MG
     Dates: start: 201901
  12. IBUPROFEN. [Concomitant]
     Active Substance: IBUPROFEN
     Dosage: 1X400, 2X DAILY (MORNING AND EVENING)
  13. AMLODIPINE [Suspect]
     Active Substance: AMLODIPINE BESYLATE
     Dosage: 5 MG
     Route: 048
     Dates: start: 2016, end: 2017
  14. BISOPROLOL COMP [Concomitant]
     Active Substance: BISOPROLOL FUMARATE\HYDROCHLOROTHIAZIDE
     Dosage: 1/2 X 10/25, 1X DAILY (MORNING)
     Dates: end: 201302
  15. EUTHYROX [Concomitant]
     Active Substance: LEVOTHYROXINE SODIUM
     Dosage: 1X 125, 1X DAILY (MORNING)
  16. PANTOPRAZOL AL [Concomitant]
     Active Substance: PANTOPRAZOLE SODIUM
     Dosage: 1X 40, 1X DAILY (MORNING), ENTERIC COATED TABLETS
  17. DIOVAN [Suspect]
     Active Substance: VALSARTAN
     Dosage: 2X 80, 1X DAILY (MORNING)
     Dates: start: 20130215, end: 201310
  18. DIOVAN [Suspect]
     Active Substance: VALSARTAN
     Dosage: 160 MG, 1X DAILY (MORNING)
     Dates: start: 201302
  19. DIOVAN [Suspect]
     Active Substance: VALSARTAN
     Dosage: 80 MG
     Dates: start: 2011, end: 2013
  20. FUROSEMIDE. [Concomitant]
     Active Substance: FUROSEMIDE
     Dosage: UNK
  21. AMLODIPINE [Suspect]
     Active Substance: AMLODIPINE BESYLATE
     Indication: PRODUCT USED FOR UNKNOWN INDICATION
     Dosage: 5 UNK, BID, ONCE IN THE MORNING, ONCE IN THE EVENING
     Dates: start: 200803
  22. DIOVAN [Suspect]
     Active Substance: VALSARTAN
     Indication: PRODUCT USED FOR UNKNOWN INDICATION
     Dosage: 1X160, 2X DAILY (MORNING AND EVENING)
     Dates: start: 201310
  23. DIOVAN [Suspect]
     Active Substance: VALSARTAN
     Dosage: HALF X 160 MG, 1X DAILY (EVENING)
     Dates: start: 20130215, end: 201310
  24. FUROSEMIDE. [Concomitant]
     Active Substance: FUROSEMIDE
     Dosage: 1 X 40 MG, 2X DAILY
     Dates: start: 201903
  25. FERRO-SANOL DUODENAL [Concomitant]
     Active Substance: FERROUS GLYCINE SULFATE
     Dosage: 1 DF, QD, 1X DAILY (MORNING)
  26. MIDAZOLAM. [Concomitant]
     Active Substance: MIDAZOLAM
     Dosage: 5MG/1ML
     Dates: start: 201903
  27. PREDNISOLONE UNK [Suspect]
     Active Substance: PREDNISOLONE
     Indication: PRODUCT USED FOR UNKNOWN INDICATION
  28. VALSARTAN. [Suspect]
     Active Substance: VALSARTAN
     Indication: PRODUCT USED FOR UNKNOWN INDICATION
     Dosage: 160 MG
     Dates: start: 201702, end: 2018
  29. VALSARTAN 1A PHARMA [Suspect]
     Active Substance: VALSARTAN
     Indication: PRODUCT USED FOR UNKNOWN INDICATION
     Dosage: 160 MG
     Dates: start: 201312, end: 2017
  30. VALSARTAN HEXAL [Suspect]
     Active Substance: VALSARTAN
     Dosage: UNK
     Dates: start: 2014
  31. L THYROX [Suspect]
     Active Substance: LEVOTHYROXINE SODIUM
     Indication: PRODUCT USED FOR UNKNOWN INDICATION
     Dosage: 1.25 TABLETS OF 100 ?G, QD, ONGOING AT DISCHARGE FROM REHABILITATION
     Route: 048
     Dates: start: 20180524, end: 20180612
  32. DIOVAN [Suspect]
     Active Substance: VALSARTAN
     Dosage: 1X80, DAILY (MORNING AND IN THE EVENING), FILM COATED TABLET
     Dates: start: 201001, end: 201302
  33. MACROGOL W/POTASSIUM CHLORIDE/SODIUM BICARBON [Concomitant]
     Dosage: POWDER
     Dates: start: 201902
  34. ECURAL [Concomitant]
     Active Substance: MOMETASONE
     Dosage: FAT CREAM
  35. L THYROXIN HENNING [Concomitant]
     Active Substance: LEVOTHYROXINE SODIUM
     Dosage: 125 UNK
     Dates: start: 2016
  36. AMLODIPINE [Suspect]
     Active Substance: AMLODIPINE BESYLATE
     Indication: PRODUCT USED FOR UNKNOWN INDICATION
     Dosage: 5 MG, BID, ONGOING AT DISCHARGE FROM REHABILITATION
     Route: 048
     Dates: start: 20180523, end: 20180612
  37. VALSARTAN. [Suspect]
     Active Substance: VALSARTAN
     Dosage: 160 MG, QD
     Dates: start: 2012
  38. VALSARTAN. [Suspect]
     Active Substance: VALSARTAN
     Dosage: 160 MG, QD
     Dates: start: 201202
  39. BISOPROLOL PLUS 1 A PHARMA [Suspect]
     Active Substance: BISOPROLOL FUMARATE\HYDROCHLOROTHIAZIDE
     Indication: PRODUCT USED FOR UNKNOWN INDICATION
     Dosage: 10/25
     Dates: start: 2014, end: 2018
  40. VALSARTAN HEXAL [Suspect]
     Active Substance: VALSARTAN
     Indication: PRODUCT USED FOR UNKNOWN INDICATION
     Dosage: HALF A TABLET OF 320 MG, BID
     Route: 048
     Dates: start: 20180523, end: 20180612
  41. FENTANYL CT [Concomitant]
     Dosage: 12 UG/H
     Dates: start: 201903
  42. TAVOR [Concomitant]
     Dosage: 1 UNK
     Dates: start: 201902
  43. HCT HEXAL [Concomitant]
     Active Substance: HYDROCHLOROTHIAZIDE
     Dosage: HALF OF TABLET OF 25 MG
     Route: 048
     Dates: start: 20180524, end: 20180524
  44. BISOPROLOL-RATIOPHARM [Concomitant]
     Active Substance: BISOPROLOL
     Dosage: 1X 5 MG
     Route: 048
     Dates: start: 20180524, end: 20180612
  45. AMLODIPINE [Suspect]
     Active Substance: AMLODIPINE BESYLATE
     Dosage: 5 MG
     Dates: start: 2013, end: 2018
  46. VALSARTAN. [Suspect]
     Active Substance: VALSARTAN
     Dosage: UNK
     Dates: start: 2017, end: 2018
  47. L THYROX [Suspect]
     Active Substance: LEVOTHYROXINE SODIUM
     Dosage: 125 UNK
     Route: 048
     Dates: start: 2014, end: 2016
  48. HALOPERIDOL. [Concomitant]
     Active Substance: HALOPERIDOL
     Dosage: 30 ML
     Dates: start: 201902
  49. DIGIMERCK [Concomitant]
     Active Substance: DIGITOXIN
     Dosage: 0.07 UNK
     Dates: start: 201901
  50. PARACETAMOL [Concomitant]
     Active Substance: ACETAMINOPHEN
     Dosage: 1000 MG, SUSPENSION
     Dates: start: 201903
  51. L THYROXIN HENNING [Concomitant]
     Active Substance: LEVOTHYROXINE SODIUM
     Dosage: 1 X 125, QD
     Dates: start: 199003, end: 2018

REACTIONS (92)
  - Atrial fibrillation [Unknown]
  - Abdominal pain [Unknown]
  - Large intestine polyp [Unknown]
  - Nephrogenic anaemia [Unknown]
  - Drug intolerance [Unknown]
  - Fibroma [Unknown]
  - General physical health deterioration [Recovering/Resolving]
  - Urinary incontinence [Not Recovered/Not Resolved]
  - Pain in extremity [Recovering/Resolving]
  - Bradycardia [Unknown]
  - Varicose vein [Unknown]
  - Diarrhoea [Unknown]
  - Arrhythmia [Unknown]
  - Drug hypersensitivity [Unknown]
  - Feeling hot [Unknown]
  - Functional gastrointestinal disorder [Unknown]
  - Supraventricular tachycardia [Unknown]
  - Weight decreased [Unknown]
  - Pleural effusion [Recovered/Resolved]
  - Vomiting [Unknown]
  - Pustule [Unknown]
  - Metastases to lung [Fatal]
  - Dizziness [Unknown]
  - Gait disturbance [Unknown]
  - Osteoarthritis [Unknown]
  - Confusional state [Unknown]
  - Cataract [Unknown]
  - Blood glucose abnormal [Unknown]
  - Ventricular extrasystoles [Unknown]
  - Insomnia [Unknown]
  - Defaecation disorder [Unknown]
  - Arthralgia [Recovering/Resolving]
  - Metastases to central nervous system [Unknown]
  - Urinary retention [Unknown]
  - Visual impairment [Unknown]
  - Vasogenic cerebral oedema [Unknown]
  - Colitis [Unknown]
  - Ischaemia [Unknown]
  - Dyspnoea [Unknown]
  - Basal cell carcinoma [Recovered/Resolved]
  - Joint swelling [Recovering/Resolving]
  - Chronic kidney disease [Unknown]
  - Haemorrhoids [Unknown]
  - Fatigue [Unknown]
  - Joint swelling [Unknown]
  - Peripheral swelling [Unknown]
  - Weight increased [Unknown]
  - Anaemia [Unknown]
  - Nocturia [Unknown]
  - Adenoma benign [Unknown]
  - Induration [Unknown]
  - Osteoporosis [Unknown]
  - Gastroenteritis [Unknown]
  - Blood pressure increased [Unknown]
  - Cognitive disorder [Recovering/Resolving]
  - Erysipelas [Recovering/Resolving]
  - Hypokalaemia [Unknown]
  - Meniscal degeneration [Unknown]
  - Tinnitus [Unknown]
  - Anal prolapse [Unknown]
  - Aphthous ulcer [Unknown]
  - Pruritus [Unknown]
  - Renal cell carcinoma [Not Recovered/Not Resolved]
  - Arthralgia [Unknown]
  - Fall [Unknown]
  - Hypothyroidism [Unknown]
  - Aortic dilatation [Unknown]
  - Inflammation [Unknown]
  - Rash [Unknown]
  - Renal neoplasm [Fatal]
  - Depression suicidal [Fatal]
  - Dermatosis [Unknown]
  - Cardiac failure [Unknown]
  - Transient ischaemic attack [Unknown]
  - Abscess [Unknown]
  - Renal cyst [Unknown]
  - Swelling [Unknown]
  - Dysuria [Recovered/Resolved]
  - Melanocytic naevus [Unknown]
  - Productive cough [Unknown]
  - Ventricular hypertrophy [Unknown]
  - Erythema [Unknown]
  - Disturbance in attention [Unknown]
  - Diabetes mellitus [Unknown]
  - Aphasia [Recovering/Resolving]
  - Asthenia [Unknown]
  - Memory impairment [Recovering/Resolving]
  - Iron deficiency [Unknown]
  - Urinary tract infection [Recovered/Resolved]
  - Tendon rupture [Unknown]
  - Cerumen impaction [Unknown]
  - Anal incontinence [Not Recovered/Not Resolved]

NARRATIVE: CASE EVENT DATE: 2007
